FAERS Safety Report 22626590 (Version 1)
Quarter: 2023Q2

REPORT INFORMATION
  Report Type: Spontaneous
  Country: TW (occurrence: TW)
  Receive Date: 20230621
  Receipt Date: 20230621
  Transmission Date: 20230721
  Serious: Yes (Other)
  Sender: FDA-Public Use
  Company Number: TW-PRINSTON PHARMACEUTICAL INC.-2023PRN00301

PATIENT
  Age: 5 Decade
  Sex: Female

DRUGS (2)
  1. BUPROPION [Suspect]
     Active Substance: BUPROPION
     Indication: Smoking cessation therapy
     Dosage: UNK
  2. BUPROPION [Suspect]
     Active Substance: BUPROPION
     Dosage: ^PILL^ [RESTARTED]

REACTIONS (1)
  - Pustular psoriasis [Unknown]
